FAERS Safety Report 16367856 (Version 1)
Quarter: 2019Q2

REPORT INFORMATION
  Report Type: Spontaneous
  Country: AU (occurrence: AU)
  Receive Date: 20190529
  Receipt Date: 20190529
  Transmission Date: 20190711
  Serious: Yes (Death, Other)
  Sender: FDA-Public Use
  Company Number: AU-BAYER-2019-062710

PATIENT
  Sex: Male

DRUGS (2)
  1. NEXAVAR [Suspect]
     Active Substance: SORAFENIB
     Indication: HUERTHLE CELL CARCINOMA
     Dosage: 200 MG, BID
     Route: 048
     Dates: start: 20181211, end: 20181225
  2. NEXAVAR [Suspect]
     Active Substance: SORAFENIB
     Indication: METASTASES TO LUNG

REACTIONS (10)
  - Muscle spasms [Recovered/Resolved]
  - Hypertension [Recovered/Resolved]
  - Tongue discomfort [Recovered/Resolved]
  - Blister [Recovered/Resolved]
  - Emotional distress [None]
  - General physical health deterioration [None]
  - Mouth ulceration [Recovered/Resolved]
  - Malaise [Recovered/Resolved]
  - Huerthle cell carcinoma [Fatal]
  - Drug ineffective [None]

NARRATIVE: CASE EVENT DATE: 201812
